FAERS Safety Report 10656376 (Version 2)
Quarter: 2014Q4

REPORT INFORMATION
  Report Type: Spontaneous
  Country: US (occurrence: US)
  Receive Date: 20141216
  Receipt Date: 20141216
  Transmission Date: 20150529
  Serious: Yes (Other)
  Sender: FDA-Public Use
  Company Number: US-CELGENEUS-163-20785-13124169

PATIENT
  Age: 63 Year
  Sex: Male

DRUGS (8)
  1. ASPIRINE [Concomitant]
     Active Substance: ASPIRIN
     Indication: PROPHYLAXIS
     Route: 048
     Dates: end: 20030108
  2. CONCERTA [Concomitant]
     Active Substance: METHYLPHENIDATE HYDROCHLORIDE
     Indication: ATTENTION DEFICIT/HYPERACTIVITY DISORDER
     Route: 048
  3. PRILOSEC [Concomitant]
     Active Substance: OMEPRAZOLE MAGNESIUM
     Indication: PROPHYLAXIS
     Dosage: 20 MILLIGRAM
     Route: 065
     Dates: end: 20030108
  4. THALOMID [Suspect]
     Active Substance: THALIDOMIDE
     Indication: PLASMA CELL MYELOMA
     Route: 048
     Dates: start: 200207
  5. BACTRIM DS [Concomitant]
     Active Substance: SULFAMETHOXAZOLE\TRIMETHOPRIM
     Indication: PROPHYLAXIS
     Route: 065
     Dates: end: 20030108
  6. THALOMID [Suspect]
     Active Substance: THALIDOMIDE
     Route: 048
     Dates: start: 200210, end: 200212
  7. COUMADIN [Concomitant]
     Active Substance: WARFARIN SODIUM
     Indication: PROPHYLAXIS
     Dosage: 2 MILLIGRAM
     Route: 065
     Dates: end: 20030108
  8. FLUCONAZOLE. [Concomitant]
     Active Substance: FLUCONAZOLE
     Indication: PROPHYLAXIS
     Dosage: 100 MILLIGRAM
     Route: 065
     Dates: end: 20030108

REACTIONS (1)
  - Phlebitis superficial [Recovered/Resolved]

NARRATIVE: CASE EVENT DATE: 201212
